FAERS Safety Report 6939536-8 (Version None)
Quarter: 2010Q3

REPORT INFORMATION
  Report Type: 
  Country: None (occurrence: None)
  Receive Date: 20100819
  Receipt Date: 20100805
  Transmission Date: 20110219
  Serious: Yes (Hospitalization)
  Sender: FDA-Public Use
  Company Number: 2010098862

PATIENT
  Age: 70 Year
  Sex: Male
  Weight: 66 kg

DRUGS (10)
  1. FRAGMIN [Suspect]
     Indication: DIALYSIS
     Dosage: 7500 IU, INTRAVENOUS
     Route: 042
  2. ACETAMINOPHEN [Concomitant]
  3. NEXIUM [Concomitant]
  4. SELOKEEN (METOPROLOL TARTRATE) [Concomitant]
  5. PERINDOPRIL ERBUMINE [Concomitant]
  6. LORAZEPAM [Concomitant]
  7. LYRICA [Concomitant]
  8. NOVOLOG [Concomitant]
  9. LASIX [Concomitant]
  10. TAMSULOSIN HCL [Concomitant]

REACTIONS (4)
  - EXTRADURAL HAEMATOMA [None]
  - MICTURITION DISORDER [None]
  - PAIN IN EXTREMITY [None]
  - PARAPARESIS [None]
